FAERS Safety Report 8361449-8 (Version None)
Quarter: 2012Q2

REPORT INFORMATION
  Report Type: 
  Country: None (occurrence: None)
  Receive Date: 20120515
  Receipt Date: 20111003
  Transmission Date: 20120825
  Serious: Yes (Hospitalization)
  Sender: FDA-Public Use
  Company Number: US-ALEXION-A201101289

PATIENT
  Sex: Female

DRUGS (4)
  1. SOLIRIS [Suspect]
     Indication: PAROXYSMAL NOCTURNAL HAEMOGLOBINURIA
     Dosage: 600 MG, QW
     Route: 042
     Dates: start: 20110610, end: 20110701
  2. BENADRYL [Concomitant]
     Indication: PROPHYLAXIS
     Dosage: 25-50 MG, WITH SOLIRIS
  3. SOLIRIS [Suspect]
     Dosage: 900 MG, Q2W
     Route: 042
     Dates: start: 20110708
  4. DILAUDID [Concomitant]
     Dosage: UNK

REACTIONS (7)
  - CONDITION AGGRAVATED [None]
  - PAIN [None]
  - HAEMOGLOBIN DECREASED [None]
  - LOOSE TOOTH [None]
  - TOOTH FRACTURE [None]
  - POOR VENOUS ACCESS [None]
  - THROMBOCYTOPENIA [None]
